FAERS Safety Report 10464409 (Version 1)
Quarter: 2014Q3

REPORT INFORMATION
  Report Type: Spontaneous
  Country: US (occurrence: US)
  Receive Date: 20140919
  Receipt Date: 20140919
  Transmission Date: 20150326
  Serious: Yes (Hospitalization)
  Sender: FDA-Public Use
  Company Number: PHHY2014US120393

PATIENT
  Age: 9 Year
  Sex: Female

DRUGS (4)
  1. VANCOMYCIN [Suspect]
     Active Substance: VANCOMYCIN
     Indication: COLITIS ISCHAEMIC
     Route: 042
  2. METRONIDAZOLE. [Suspect]
     Active Substance: METRONIDAZOLE
     Indication: COLITIS ISCHAEMIC
     Route: 042
  3. PIPERACILLIN [Suspect]
     Active Substance: PIPERACILLIN
     Indication: COLITIS ISCHAEMIC
     Route: 042
  4. TAZOBACTAM [Suspect]
     Active Substance: TAZOBACTAM
     Indication: COLITIS ISCHAEMIC
     Route: 042

REACTIONS (2)
  - Sepsis [Unknown]
  - Condition aggravated [Unknown]
